FAERS Safety Report 9900803 (Version 1)
Quarter: 2014Q1

REPORT INFORMATION
  Report Type: Spontaneous
  Country: US (occurrence: US)
  Receive Date: 20140217
  Receipt Date: 20140217
  Transmission Date: 20141002
  Serious: No
  Sender: FDA-Public Use
  Company Number: US-009507513-1401USA012797

PATIENT
  Sex: Male

DRUGS (3)
  1. PEGINTRON [Suspect]
     Indication: HEPATITIS C
     Dosage: UNKNOWN, Q7DAYS
     Route: 058
     Dates: start: 20131227, end: 20140124
  2. RIBAVIRIN (WARRICK) [Suspect]
     Dosage: UNK, BID
     Route: 048
     Dates: start: 20131227, end: 20140124
  3. CIMETIDINE [Concomitant]

REACTIONS (3)
  - Dyspepsia [Unknown]
  - Hepatic pain [Unknown]
  - Vomiting [Unknown]
